FAERS Safety Report 6375767-6 (Version None)
Quarter: 2009Q3

REPORT INFORMATION
  Report Type: 
  Country: None (occurrence: None)
  Receive Date: 20090924
  Receipt Date: 20090917
  Transmission Date: 20100115
  Serious: Yes (Death, Hospitalization, Other)
  Sender: FDA-Public Use
  Company Number: US-PFIZER INC-2009271036

PATIENT
  Sex: Male

DRUGS (22)
  1. DILANTIN-125 [Suspect]
     Dosage: 200 MG, 2X/DAY
  2. HYDROXYZINE HCL [Suspect]
  3. CLINDAMYCIN HCL [Suspect]
     Indication: TOXOPLASMOSIS
     Dosage: UNK
     Dates: start: 19960508
  4. MORPHINE SULFATE [Suspect]
     Dosage: UNK
     Dates: start: 19960509
  5. TRIMETHOPRIM [Suspect]
     Indication: ANTIFUNGAL PROPHYLAXIS
     Dosage: 150 MG, 1X/DAY
  6. AMPICILLIN AND AMPICILLIN SODIUM AND AMPICILLIN TRIHYDRATE [Suspect]
     Indication: OPPORTUNISTIC INFECTION PROPHYLAXIS
     Dosage: UNK
     Dates: start: 19960508
  7. FOLIC ACID [Suspect]
     Dosage: 5 MG, 1X/DAY
  8. AZT [Suspect]
     Indication: ANTIRETROVIRAL THERAPY
     Dosage: 200 MG, 3X/DAY
  9. 3TC [Suspect]
     Indication: ANTIRETROVIRAL THERAPY
     Dosage: 150 MG, 2X/DAY
  10. INVIRASE [Suspect]
     Indication: HIV INFECTION
     Dosage: 600 MG, 3X/DAY
     Route: 048
  11. VERSED [Suspect]
     Indication: AGITATION
     Dosage: UNK
     Dates: start: 19960508
  12. CEFTRIAXONE SODIUM [Suspect]
     Indication: OPPORTUNISTIC INFECTION PROPHYLAXIS
     Dosage: UNK
     Dates: start: 19960508
  13. SULPHADIAZINE [Suspect]
     Dosage: 25 MG, 3X/DAY
  14. METHADONE [Suspect]
     Dosage: 40 MG, 1X/DAY
  15. ETHAMBUTOL [Suspect]
     Indication: OPPORTUNISTIC INFECTION PROPHYLAXIS
     Dosage: 150 MG, 2X/DAY
  16. PYRIMETHAMINE [Suspect]
     Dosage: 25 MG, 3X/DAY
  17. ATIVAN [Suspect]
     Indication: AGITATION
     Dosage: UNK
     Dates: start: 19960508
  18. HALDOL [Suspect]
     Indication: AGITATION
     Dosage: UNK
     Dates: start: 19960508
  19. PEPCID [Suspect]
     Dosage: UNK
     Dates: start: 19960508
  20. ACYCLOVIR [Suspect]
     Indication: ANTIVIRAL PROPHYLAXIS
     Dosage: UNK
     Dates: start: 19960508
  21. MANNITOL [Suspect]
     Dosage: UNK
     Dates: start: 19960508
  22. COCAINE [Suspect]

REACTIONS (13)
  - AGITATION [None]
  - ATAXIA [None]
  - BLOOD CREATINE PHOSPHOKINASE INCREASED [None]
  - BLOOD MAGNESIUM DECREASED [None]
  - BLOOD POTASSIUM DECREASED [None]
  - DYSKINESIA [None]
  - HEADACHE [None]
  - HYPOTENSION [None]
  - MENTAL STATUS CHANGES [None]
  - MUSCULAR WEAKNESS [None]
  - TORSADE DE POINTES [None]
  - VENTRICULAR ARRHYTHMIA [None]
  - VENTRICULAR EXTRASYSTOLES [None]
